FAERS Safety Report 6417320-1 (Version None)
Quarter: 2009Q4

REPORT INFORMATION
  Report Type: 
  Country: None (occurrence: None)
  Receive Date: 20091028
  Receipt Date: 20091021
  Transmission Date: 20100525
  Serious: Yes (Disabling, Other)
  Sender: FDA-Public Use
  Company Number: PHEH2009US13793

PATIENT
  Sex: Female
  Weight: 48.526 kg

DRUGS (4)
  1. EXELON [Suspect]
     Indication: DEMENTIA
     Dosage: 9.5MG, 1 PATCH DAILY
     Dates: start: 20090728, end: 20091007
  2. ATENOLOL [Concomitant]
     Indication: CARDIOVASCULAR DISORDER
     Dosage: 25 MG, QD
  3. ASPIRIN [Concomitant]
     Indication: CARDIOVASCULAR DISORDER
     Dosage: 81 MG, QD
     Route: 048
  4. ALENDRONATE SODIUM [Concomitant]
     Indication: OSTEOPOROSIS
     Dosage: 70 MG, QW
     Route: 048

REACTIONS (6)
  - APPLICATION SITE ERYTHEMA [None]
  - APPLICATION SITE PRURITUS [None]
  - APPLICATION SITE REACTION [None]
  - HAEMORRHAGE [None]
  - INSOMNIA [None]
  - SCRATCH [None]
